FAERS Safety Report 14278055 (Version 1)
Quarter: 2017Q4

REPORT INFORMATION
  Report Type: Report from Study
  Country: US (occurrence: US)
  Receive Date: 20171212
  Receipt Date: 20171212
  Transmission Date: 20180321
  Serious: Yes (Death)
  Sender: FDA-Public Use
  Company Number: US-LOREAL USA PRODUCTS, INC.-2017LOR00007

PATIENT
  Sex: Female

DRUGS (1)
  1. SKINCEUTICALS SHEER PHYSICAL UV DEFENSE BROAD SPECTRUM SPF 50 SUNSCREEN [Suspect]
     Active Substance: TITANIUM DIOXIDE\ZINC OXIDE
     Dosage: UNK

REACTIONS (1)
  - Completed suicide [Fatal]

NARRATIVE: CASE EVENT DATE: 20171122
